FAERS Safety Report 9663661 (Version 1)
Quarter: 2013Q4

REPORT INFORMATION
  Report Type: Spontaneous
  Country: DE (occurrence: DE)
  Receive Date: 20131101
  Receipt Date: 20131101
  Transmission Date: 20140711
  Serious: Yes (Hospitalization)
  Sender: FDA-Public Use
  Company Number: PHHY2013DE123580

PATIENT
  Age: 90 Year
  Sex: Female

DRUGS (1)
  1. RASILEZ [Suspect]

REACTIONS (3)
  - Intestinal ischaemia [Unknown]
  - Abdominal discomfort [Unknown]
  - Blood pressure increased [Unknown]
